FAERS Safety Report 22284073 (Version 2)
Quarter: 2024Q4

REPORT INFORMATION
  Report Type: Spontaneous
  Country: FR (occurrence: FR)
  Receive Date: 20230504
  Receipt Date: 20241003
  Transmission Date: 20250115
  Serious: Yes (Other)
  Sender: RANBAXY
  Company Number: FR-AFSSAPS-LM2023000123

PATIENT
  Age: 15 Year
  Sex: Female

DRUGS (5)
  1. QUETIAPINE [Suspect]
     Active Substance: QUETIAPINE
     Indication: Decreased appetite
     Dosage: 100 MILLIGRAM, DAILY
     Route: 048
     Dates: start: 202208
  2. AMISULPRIDE [Suspect]
     Active Substance: AMISULPRIDE
     Indication: Decreased appetite
     Dosage: 100 MILLIGRAM, DAILY
     Route: 048
     Dates: end: 202209
  3. MAGNESIUM [Concomitant]
     Active Substance: MAGNESIUM
     Indication: Product used for unknown indication
     Dosage: UNK
     Route: 065
  4. FLUOXETINE [Concomitant]
     Active Substance: FLUOXETINE HYDROCHLORIDE
     Indication: Product used for unknown indication
     Dosage: UNK
     Route: 065
  5. CALCIUM PHOSPHATE, DIBASIC, ANHYDROUS\MAGNESIUM GLYCEROPHOSPHATE\PHOSP [Concomitant]
     Active Substance: CALCIUM PHOSPHATE, DIBASIC, ANHYDROUS\MAGNESIUM GLYCEROPHOSPHATE\PHOSPHORIC ACID\SODIUM PHOSPHATE, D
     Indication: Product used for unknown indication
     Dosage: UNK
     Route: 065

REACTIONS (1)
  - Hyperthyroidism [Recovered/Resolved]

NARRATIVE: CASE EVENT DATE: 20220830
